FAERS Safety Report 4343958-1 (Version None)
Quarter: 2004Q2

REPORT INFORMATION
  Report Type: 
  Country: None (occurrence: None)
  Receive Date: 20040422
  Receipt Date: 20040413
  Transmission Date: 20050107
  Serious: Yes (Death)
  Sender: FDA-Public Use
  Company Number: CO-ROCHE-364233

PATIENT
  Age: 23 Year
  Sex: Male

DRUGS (3)
  1. ROACCUTAN [Suspect]
     Route: 065
     Dates: start: 20040126
  2. AMITRIPTYLINE HCL [Suspect]
     Indication: DRUG USE FOR UNKNOWN INDICATION
     Dosage: DRUG REPORTED AS: AMYTRIPTILINE.
     Route: 065
  3. BARBITURATES [Concomitant]
     Route: 065

REACTIONS (1)
  - COMPLETED SUICIDE [None]
